FAERS Safety Report 16668621 (Version 7)
Quarter: 2023Q1

REPORT INFORMATION
  Report Type: Spontaneous
  Country: US (occurrence: US)
  Receive Date: 20190805
  Receipt Date: 20230227
  Transmission Date: 20230417
  Serious: Yes (Death, Other)
  Sender: FDA-Public Use
  Company Number: US-PFIZER INC-2019333715

PATIENT
  Age: 61 Year
  Sex: Male

DRUGS (1)
  1. LORBRENA [Suspect]
     Active Substance: LORLATINIB
     Indication: Non-small cell lung cancer
     Dosage: UNK
     Dates: start: 201812, end: 2022

REACTIONS (4)
  - Death [Fatal]
  - Oedema [Unknown]
  - Memory impairment [Unknown]
  - Neoplasm progression [Unknown]
